FAERS Safety Report 12587219 (Version 2)
Quarter: 2016Q3

REPORT INFORMATION
  Report Type: Spontaneous
  Country: US (occurrence: US)
  Receive Date: 20160725
  Receipt Date: 20160729
  Transmission Date: 20161109
  Serious: Yes (Death, Hospitalization)
  Sender: FDA-Public Use
  Company Number: US-ASTELLAS-2015US037445

PATIENT
  Age: 89 Year
  Sex: Male

DRUGS (2)
  1. XTANDI [Suspect]
     Active Substance: ENZALUTAMIDE
     Indication: PROSTATE CANCER
     Route: 065
  2. XTANDI [Suspect]
     Active Substance: ENZALUTAMIDE
     Route: 048
     Dates: end: 20160711

REACTIONS (14)
  - Hypersomnia [Unknown]
  - Arthropathy [Unknown]
  - Fatigue [Unknown]
  - Asthenia [Recovering/Resolving]
  - Blood pressure decreased [Unknown]
  - Hot flush [Unknown]
  - Death [Fatal]
  - Heart rate decreased [Recovering/Resolving]
  - Nocturia [Unknown]
  - Cerebrovascular accident [Not Recovered/Not Resolved]
  - Brain scan abnormal [Unknown]
  - Hypotension [Not Recovered/Not Resolved]
  - Hallucination [Unknown]
  - Gait disturbance [Unknown]

NARRATIVE: CASE EVENT DATE: 201511
